FAERS Safety Report 8328491-4 (Version None)
Quarter: 2012Q2

REPORT INFORMATION
  Report Type: 
  Country: None (occurrence: None)
  Receive Date: 20120502
  Receipt Date: 20120425
  Transmission Date: 20120825
  Serious: Yes (Hospitalization, Other)
  Sender: FDA-Public Use
  Company Number: US-BAYER-2011-100351

PATIENT
  Age: 29 Year
  Sex: Female
  Weight: 83.9 kg

DRUGS (7)
  1. BENTYL [Concomitant]
  2. YAZ [Suspect]
     Indication: CONTRACEPTION
     Route: 048
     Dates: start: 20080201, end: 20081001
  3. HYDROCODONE BITARTRATE [Concomitant]
     Dosage: 5/500MG 1-2 EVER 6 HOURS, PRN
  4. RENAFOOD SUPPLEMENT [Concomitant]
  5. ETHINYLESTRAD W/FERROUS FUM/NORETHISTER ACET [Concomitant]
  6. PROMETHAZINE [Concomitant]
     Dosage: 25 MG, EVERY 6 HOURS PRN
  7. PROTONIX [Concomitant]

REACTIONS (8)
  - CHOLECYSTITIS CHRONIC [None]
  - CHOLECYSTECTOMY [None]
  - INJURY [None]
  - NAUSEA [None]
  - CHOLELITHIASIS [None]
  - PANCREATITIS [None]
  - HEADACHE [None]
  - PAIN [None]
